FAERS Safety Report 8012535-3 (Version None)
Quarter: 2011Q4

REPORT INFORMATION
  Report Type: 
  Country: None (occurrence: None)
  Receive Date: 20111229
  Receipt Date: 20111222
  Transmission Date: 20120403
  Serious: Yes (Other)
  Sender: FDA-Public Use
  Company Number: US-BIOGENIDEC-2011BI043469

PATIENT
  Age: 43 Year
  Sex: Female

DRUGS (1)
  1. AVONEX [Suspect]
     Indication: MULTIPLE SCLEROSIS
     Route: 030
     Dates: start: 20091214

REACTIONS (4)
  - PAIN IN EXTREMITY [None]
  - CHEST PAIN [None]
  - DYSPNOEA [None]
  - CEREBROVASCULAR ACCIDENT [None]
